FAERS Safety Report 15258443 (Version 1)
Quarter: 2018Q4

REPORT INFORMATION
  Report Type: Spontaneous
  Country: GB (occurrence: GB)
  Receive Date: 20180809
  Receipt Date: 20180809
  Transmission Date: 20190204
  Serious: Yes (Other)
  Sender: FDA-Public Use
  Company Number: GB-TEVA-2018-GB-936908

PATIENT
  Sex: Female

DRUGS (5)
  1. TRILEPTAL [Concomitant]
     Active Substance: OXCARBAZEPINE
     Indication: PRODUCT USED FOR UNKNOWN INDICATION
     Dosage: 900 MILLIGRAM DAILY;
     Route: 065
  2. NAPROXEN TABLETS BP 250 MG [Suspect]
     Active Substance: NAPROXEN
     Indication: PAIN IN EXTREMITY
     Dosage: 750 MILLIGRAM DAILY;
     Route: 065
     Dates: start: 20180129
  3. KEPPRA [Concomitant]
     Active Substance: LEVETIRACETAM
     Indication: PRODUCT USED FOR UNKNOWN INDICATION
     Dosage: 3000 MILLIGRAM DAILY;
     Route: 065
  4. GABAPENTIN. [Concomitant]
     Active Substance: GABAPENTIN
     Indication: PRODUCT USED FOR UNKNOWN INDICATION
     Dosage: 900 MILLIGRAM DAILY;
     Route: 065
  5. NAPROXEN TABLETS BP 250 MG [Suspect]
     Active Substance: NAPROXEN
     Indication: ARTHRALGIA

REACTIONS (5)
  - Joint swelling [Not Recovered/Not Resolved]
  - Lip discolouration [Unknown]
  - Contusion [Not Recovered/Not Resolved]
  - Contusion [Recovered/Resolved]
  - Lip swelling [Recovering/Resolving]
